FAERS Safety Report 5014659-1 (Version None)
Quarter: 2006Q2

REPORT INFORMATION
  Report Type: 
  Country: None (occurrence: None)
  Receive Date: 20060531
  Receipt Date: 20060525
  Transmission Date: 20061013
  Serious: Yes (Disabling)
  Sender: FDA-Public Use
  Company Number: US-MERCK-0605USA04857

PATIENT
  Age: 78 Year
  Sex: Male

DRUGS (4)
  1. ZETIA [Suspect]
     Indication: BLOOD CHOLESTEROL INCREASED
     Route: 048
  2. PRAVACHOL [Concomitant]
     Route: 065
  3. COREG [Concomitant]
     Route: 065
  4. NIACIN [Concomitant]
     Route: 065

REACTIONS (2)
  - DIARRHOEA [None]
  - WEIGHT DECREASED [None]
